FAERS Safety Report 4732790-2 (Version None)
Quarter: 2005Q3

REPORT INFORMATION
  Report Type: 
  Country: None (occurrence: None)
  Receive Date: 20050801
  Receipt Date: 20050720
  Transmission Date: 20060218
  Serious: Yes (Other)
  Sender: FDA-Public Use
  Company Number: 8011165

PATIENT
  Age: 82 Year
  Sex: Male

DRUGS (5)
  1. KEPPRA [Suspect]
     Indication: EPILEPSY
     Dosage: 500 MG 2/D PO
     Route: 048
     Dates: start: 20050101
  2. MODOPAR [Concomitant]
  3. PROSCAR [Concomitant]
  4. INSULIN [Concomitant]
  5. MONO-TILDIEM [Concomitant]

REACTIONS (5)
  - ANOREXIA [None]
  - HAEMATURIA [None]
  - PURPURA [None]
  - RENAL COLIC [None]
  - SOMNOLENCE [None]
